FAERS Safety Report 7906248-3 (Version None)
Quarter: 2011Q4

REPORT INFORMATION
  Report Type: 
  Country: None (occurrence: None)
  Receive Date: 20111110
  Receipt Date: 20110104
  Transmission Date: 20120403
  Serious: Yes (Hospitalization, Other)
  Sender: FDA-Public Use
  Company Number: US-BAYER-200929854NA

PATIENT
  Age: 20 Year
  Sex: Female
  Weight: 111 kg

DRUGS (3)
  1. MIRENA [Suspect]
     Indication: CONTRACEPTION
     Dosage: CONTINUOUS DELIVERY
     Route: 015
     Dates: start: 20100604, end: 20101109
  2. LEXAPRO [Concomitant]
     Dosage: UNK
     Dates: end: 20100801
  3. TRAZODONE HCL [Concomitant]
     Dosage: UNK
     Dates: end: 20100801

REACTIONS (5)
  - BREECH PRESENTATION [None]
  - PREMATURE DELIVERY [None]
  - PREGNANCY [None]
  - ANTEPARTUM HAEMORRHAGE [None]
  - PREMATURE RUPTURE OF MEMBRANES [None]
